FAERS Safety Report 24238035 (Version 2)
Quarter: 2024Q3

REPORT INFORMATION
  Report Type: Spontaneous
  Country: US (occurrence: US)
  Receive Date: 20240822
  Receipt Date: 20240905
  Transmission Date: 20241016
  Serious: No
  Sender: MYLAN
  Company Number: US-MYLANLABS-2024M1073315

PATIENT
  Age: 6 Year
  Sex: Male

DRUGS (1)
  1. BREYNA [Suspect]
     Active Substance: BUDESONIDE\FORMOTEROL FUMARATE
     Indication: Cough
     Dosage: 80/4.5 MICROGRAM, BID (ONE PUFF TWICE A DAY AS NEEDED)
     Route: 055
     Dates: start: 202407

REACTIONS (4)
  - Intentional product misuse [Unknown]
  - Device breakage [Unknown]
  - Device failure [Unknown]
  - Device delivery system issue [Unknown]

NARRATIVE: CASE EVENT DATE: 20240701
